FAERS Safety Report 9009616 (Version 1)
Quarter: 2013Q1

REPORT INFORMATION
  Report Type: Spontaneous
  Country: US (occurrence: US)
  Receive Date: 20130110
  Receipt Date: 20130110
  Transmission Date: 20140127
  Serious: Yes (Hospitalization, Other)
  Sender: FDA-Public Use
  Company Number: US-009507513-1301USA001574

PATIENT
  Sex: Male

DRUGS (4)
  1. MONTELUKAST SODIUM [Suspect]
     Route: 048
  2. ADVAIR [Suspect]
     Route: 055
  3. PROVENTIL HFA [Suspect]
     Route: 055
  4. XOPENEX [Suspect]
     Route: 055

REACTIONS (2)
  - Status asthmaticus [Unknown]
  - Drug ineffective [Unknown]
